FAERS Safety Report 10197168 (Version 1)
Quarter: 2014Q2

REPORT INFORMATION
  Report Type: Spontaneous
  Country: CH (occurrence: CH)
  Receive Date: 20140527
  Receipt Date: 20140527
  Transmission Date: 20141212
  Serious: Yes (Other)
  Sender: FDA-Public Use
  Company Number: CH-JNJFOC-20140512871

PATIENT
  Age: 43 Year
  Sex: Male

DRUGS (14)
  1. INVEGA [Suspect]
     Indication: PRODUCT USED FOR UNKNOWN INDICATION
     Route: 048
     Dates: start: 20130726, end: 20130805
  2. INVEGA [Suspect]
     Indication: PRODUCT USED FOR UNKNOWN INDICATION
     Route: 048
     Dates: start: 20130806, end: 20130827
  3. TRUXAL [Suspect]
     Indication: ABNORMAL BEHAVIOUR
     Route: 065
     Dates: start: 20130803
  4. TRUXAL [Suspect]
     Indication: ABNORMAL BEHAVIOUR
     Route: 065
     Dates: start: 20130805
  5. TRUXAL [Suspect]
     Indication: ABNORMAL BEHAVIOUR
     Route: 065
     Dates: end: 20130807
  6. TRUXAL [Suspect]
     Indication: ABNORMAL BEHAVIOUR
     Route: 065
     Dates: start: 20130806
  7. TRUXAL [Suspect]
     Indication: MENTAL DISORDER
     Route: 065
     Dates: end: 20130807
  8. TRUXAL [Suspect]
     Indication: MENTAL DISORDER
     Route: 065
     Dates: start: 20130805
  9. TRUXAL [Suspect]
     Indication: MENTAL DISORDER
     Route: 065
     Dates: start: 20130803
  10. TRUXAL [Suspect]
     Indication: MENTAL DISORDER
     Route: 065
     Dates: start: 20130806
  11. TRUXAL [Suspect]
     Indication: PSYCHOTIC DISORDER
     Route: 065
     Dates: start: 20130806
  12. TRUXAL [Suspect]
     Indication: PSYCHOTIC DISORDER
     Route: 065
     Dates: start: 20130805
  13. TRUXAL [Suspect]
     Indication: PSYCHOTIC DISORDER
     Route: 065
     Dates: start: 20130803
  14. TRUXAL [Suspect]
     Indication: PSYCHOTIC DISORDER
     Route: 065
     Dates: end: 20130807

REACTIONS (5)
  - Hyponatraemia [Recovered/Resolved]
  - Water intoxication [Recovered/Resolved]
  - Generalised tonic-clonic seizure [Recovered/Resolved]
  - Coma scale abnormal [Recovering/Resolving]
  - Vomiting [Recovering/Resolving]
